FAERS Safety Report 8472608 (Version 5)
Quarter: 2013Q2

REPORT INFORMATION
  Report Type: Report from Study
  Country: DE (occurrence: DE)
  Receive Date: 20120322
  Receipt Date: 20130607
  Transmission Date: 20140414
  Serious: Yes (Death, Other)
  Sender: FDA-Public Use
  Company Number: DE-SANOFI-AVENTIS-2012SA019426

PATIENT
  Age: 74 Year
  Sex: Male
  Weight: 70 kg

DRUGS (5)
  1. JEVTANA [Suspect]
     Indication: PROSTATE CANCER METASTATIC
     Route: 051
  2. JEVTANA [Suspect]
     Indication: PROSTATE CANCER METASTATIC
     Route: 051
     Dates: start: 20120308, end: 20120308
  3. ELIGARD [Concomitant]
     Indication: PREMEDICATION
     Route: 065
     Dates: end: 2012
  4. ONDANSETRON [Concomitant]
     Indication: PREMEDICATION
     Route: 065
     Dates: end: 201203
  5. BICALUTAMIDE [Concomitant]
     Indication: PROSTATE CANCER
     Route: 065

REACTIONS (3)
  - Cardiac failure [Fatal]
  - Renal failure [Fatal]
  - Febrile neutropenia [Unknown]
